FAERS Safety Report 7201595-5 (Version None)
Quarter: 2010Q4

REPORT INFORMATION
  Report Type: 
  Country: None (occurrence: None)
  Receive Date: 20101214
  Receipt Date: 20101130
  Transmission Date: 20110411
  Serious: Yes (Hospitalization)
  Sender: FDA-Public Use
  Company Number: 2010P1002727

PATIENT
  Age: 74 Year
  Sex: Female
  Weight: 78.9259 kg

DRUGS (12)
  1. FENTANYL-25 [Suspect]
     Indication: PAIN
     Dosage: 25 MCG/HR;Q3D;TDER
     Route: 062
     Dates: start: 20060101
  2. FENTANYL [Suspect]
     Indication: PAIN
     Dosage: 100 MCG/HR;TDER
     Route: 062
     Dates: start: 20040101, end: 20060101
  3. DURAGESIC PATCH (NO PREF. NAME) [Suspect]
  4. OMEPRAZOLE [Concomitant]
  5. MIACALCIN SPRAY [Concomitant]
  6. CALCIUM [Concomitant]
  7. COREG [Concomitant]
  8. CYMBALTA [Concomitant]
  9. SANCTURA [Concomitant]
  10. NITROFURANTOIN [Concomitant]
  11. PERCOCET [Concomitant]
  12. PREV MEDS [Concomitant]

REACTIONS (17)
  - ANGINA UNSTABLE [None]
  - BACK PAIN [None]
  - CONSTIPATION [None]
  - DEPRESSION [None]
  - FATIGUE [None]
  - HYPERTENSION [None]
  - INTERVERTEBRAL DISC DEGENERATION [None]
  - NECK PAIN [None]
  - PAIN IN EXTREMITY [None]
  - POST POLIO SYNDROME [None]
  - REFLUX OESOPHAGITIS [None]
  - RESPIRATORY RATE DECREASED [None]
  - RIB FRACTURE [None]
  - SCOLIOSIS [None]
  - SOMNOLENCE [None]
  - URINARY INCONTINENCE [None]
  - URINARY TRACT INFECTION [None]
